FAERS Safety Report 7867333-8 (Version None)
Quarter: 2011Q4

REPORT INFORMATION
  Report Type: 
  Country: None (occurrence: None)
  Receive Date: 20111028
  Receipt Date: 20111025
  Transmission Date: 20120403
  Serious: Yes (Hospitalization)
  Sender: FDA-Public Use
  Company Number: DK-PFIZER INC-2011259560

PATIENT
  Age: 74 Year
  Sex: Male
  Weight: 182 kg

DRUGS (1)
  1. SUNITINIB MALATE [Suspect]
     Indication: METASTATIC RENAL CELL CARCINOMA
     Dosage: 50 MG, 1X/DAY, IN 14 DAYS THEN PAUSE IN 14 DAYSE
     Dates: start: 20100505, end: 20100518

REACTIONS (1)
  - ULCER HAEMORRHAGE [None]
